FAERS Safety Report 7126886-8 (Version None)
Quarter: 2010Q4

REPORT INFORMATION
  Report Type: 
  Country: None (occurrence: None)
  Receive Date: 20101129
  Receipt Date: 20091228
  Transmission Date: 20110411
  Serious: No
  Sender: FDA-Public Use
  Company Number: US-PFIZER INC-2009315850

PATIENT
  Sex: Male
  Weight: 142 kg

DRUGS (2)
  1. VIAGRA [Suspect]
     Route: 048
     Dates: start: 20091228
  2. HEROIN [Concomitant]
     Dosage: UNK

REACTIONS (2)
  - ERECTILE DYSFUNCTION [None]
  - PENIS DISORDER [None]
